FAERS Safety Report 5599981-2 (Version None)
Quarter: 2008Q1

REPORT INFORMATION
  Report Type: 
  Country: None (occurrence: None)
  Receive Date: 20080123
  Receipt Date: 20080111
  Transmission Date: 20080703
  Serious: Yes (Hospitalization)
  Sender: FDA-Public Use
  Company Number: NL-ASTRAZENECA-2008AC00171

PATIENT
  Age: 29026 Day
  Sex: Female
  Weight: 71 kg

DRUGS (5)
  1. SELOKEEN ZOC [Suspect]
     Indication: CARDIAC FAILURE
     Route: 048
     Dates: start: 20071222, end: 20071224
  2. MICARDIS [Suspect]
     Dates: start: 20071222, end: 20071224
  3. MADOPAR [Concomitant]
     Dates: start: 19900101
  4. REQUIP [Concomitant]
     Dates: start: 19900101
  5. FUROSEMIDUM [Concomitant]
     Dates: start: 19900101

REACTIONS (4)
  - ABDOMINAL PAIN [None]
  - BACK PAIN [None]
  - HYPERKINESIA [None]
  - NAUSEA [None]
